FAERS Safety Report 8093682-7 (Version None)
Quarter: 2012Q1

REPORT INFORMATION
  Report Type: 
  Country: None (occurrence: None)
  Receive Date: 20120129
  Receipt Date: 20111026
  Transmission Date: 20120608
  Serious: No
  Sender: FDA-Public Use
  Company Number: US-ABBOTT-11P-163-0868536-00

PATIENT
  Age: 54 Year
  Sex: Female

DRUGS (4)
  1. ACIPHEX [Concomitant]
     Indication: GASTROOESOPHAGEAL REFLUX DISEASE
  2. TOPICAL MEDICATIONS [Concomitant]
     Indication: PSORIASIS
     Route: 061
  3. UNKNOWN CHOLESTEROL MEDICATION [Concomitant]
     Indication: BLOOD CHOLESTEROL
  4. HUMIRA [Suspect]
     Indication: PSORIASIS
     Dates: start: 20100101, end: 20110601

REACTIONS (1)
  - PSORIASIS [None]
